FAERS Safety Report 9054851 (Version 1)
Quarter: 2013Q1

REPORT INFORMATION
  Report Type: Spontaneous
  Country: SE (occurrence: SE)
  Receive Date: 20130208
  Receipt Date: 20130208
  Transmission Date: 20140127
  Serious: Yes (Other)
  Sender: FDA-Public Use
  Company Number: SE-PFIZER INC-2013026656

PATIENT
  Age: 14 Year
  Sex: Female

DRUGS (1)
  1. IPREN [Suspect]
     Indication: PAIN IN EXTREMITY
     Dosage: 2 TABLETS IN A DAY
     Route: 048

REACTIONS (4)
  - Throat irritation [Unknown]
  - Abdominal pain upper [Unknown]
  - Pain in extremity [Unknown]
  - Product quality issue [Unknown]
